FAERS Safety Report 8739634 (Version 4)
Quarter: 2018Q4

REPORT INFORMATION
  Report Type: Spontaneous
  Country: FR (occurrence: FR)
  Receive Date: 20120823
  Receipt Date: 20181115
  Transmission Date: 20190205
  Serious: Yes (Life-Threatening)
  Sender: FDA-Public Use
  Company Number: FR-PFIZER INC-2012201688

PATIENT
  Age: 86 Year
  Sex: Female
  Weight: 84 kg

DRUGS (25)
  1. ESOMEPRAZOLE. [Concomitant]
     Active Substance: ESOMEPRAZOLE MAGNESIUM
     Dosage: UNK
  2. MABTHERA [Suspect]
     Active Substance: RITUXIMAB
     Indication: NON-HODGKIN^S LYMPHOMA
     Dosage: 300 MG, CYCLIC
     Route: 041
     Dates: start: 20120703, end: 20120703
  3. PARACETAMOL [Suspect]
     Active Substance: ACETAMINOPHEN
     Indication: PREMEDICATION
     Dosage: 1 G, CYCLIC
     Route: 041
     Dates: start: 20120703, end: 20120703
  4. DOLIPRANE [Concomitant]
     Active Substance: ACETAMINOPHEN
     Dosage: 500 MG, 6X/DAY
  5. SOLU-MEDROL [Suspect]
     Active Substance: METHYLPREDNISOLONE SODIUM SUCCINATE
     Dosage: 1X/DAY (DAILY)
     Route: 041
  6. POLARAMINE [Suspect]
     Active Substance: DEXCHLORPHENIRAMINE MALEATE
     Indication: PREMEDICATION
     Dosage: 5 MG, CYCLIC
     Route: 041
     Dates: start: 20120703, end: 20120703
  7. CETIRIZINE [Concomitant]
     Active Substance: CETIRIZINE HYDROCHLORIDE
     Dosage: 10 MG, 3X/DAY
  8. DOMPERIDONE [Concomitant]
     Active Substance: DOMPERIDONE
     Dosage: 10 MG, 3X/DAY
  9. TRANSIPEG [Concomitant]
     Dosage: 1 DF, DAILY
  10. FASTURTEC [Suspect]
     Active Substance: RASBURICASE
     Indication: PREMEDICATION
     Dosage: 10.5 MG, CYCLIC (ADMINISTERED IN 30 MINUTES)
     Route: 041
     Dates: start: 20120703, end: 20120703
  11. ZOPHREN [Suspect]
     Active Substance: ONDANSETRON
     Dosage: 5 MG DAILY AND DURATION OF ADMINISTRATION WAS 20 MINUTES
     Route: 041
  12. DOLIPRANE [Concomitant]
     Active Substance: ACETAMINOPHEN
     Dosage: UNK, 1X/DAY (DAILY)
  13. LANSOYL [Concomitant]
     Active Substance: MINERAL OIL
     Dosage: 2 DF, DAILY
  14. ZYLORIC [Concomitant]
     Active Substance: ALLOPURINOL
     Dosage: 300 MG, 1X/DAY
  15. SERETIDE [Concomitant]
     Active Substance: FLUTICASONE PROPIONATE\SALMETEROL XINAFOATE
     Dosage: 2 DF, DAILY
  16. DOMPERIDONE [Concomitant]
     Active Substance: DOMPERIDONE
     Dosage: 1X/DAY (DAILY)
  17. ESOMEPRAZOLE. [Concomitant]
     Active Substance: ESOMEPRAZOLE MAGNESIUM
     Dosage: 40 MG, 1X/DAY
  18. VENTOLINE [Concomitant]
     Active Substance: ALBUTEROL
     Dosage: UNK, DAILY
  19. GAVISCON [Concomitant]
     Active Substance: ALUMINUM HYDROXIDE\MAGNESIUM CARBONATE
     Dosage: 1 DF, DAILY
  20. FRAGMIN [Concomitant]
     Active Substance: DALTEPARIN SODIUM
     Dosage: 5000 IU
  21. SOLU-MEDROL [Suspect]
     Active Substance: METHYLPREDNISOLONE SODIUM SUCCINATE
     Indication: PREMEDICATION
     Dosage: 80 MG, CYCLIC
     Route: 041
     Dates: start: 20120703, end: 20120703
  22. ZOPHREN [Suspect]
     Active Substance: ONDANSETRON
     Indication: PREMEDICATION
     Dosage: 5 MG, CYCLIC
     Route: 041
     Dates: start: 20120703, end: 20120703
  23. CETIRIZINE [Concomitant]
     Active Substance: CETIRIZINE HYDROCHLORIDE
     Dosage: UNK, DAILY
  24. TEMESTA [LORAZEPAM] [Concomitant]
     Active Substance: LORAZEPAM
     Dosage: 10 MG, 1X/DAY
  25. VENTOLINE [Concomitant]
     Active Substance: ALBUTEROL
     Dosage: 100 UG, 2X/DAY

REACTIONS (4)
  - Abdominal pain [Recovered/Resolved]
  - Livedo reticularis [Recovered/Resolved]
  - Hypersensitivity [Recovered/Resolved]
  - Respiratory distress [Recovered/Resolved]

NARRATIVE: CASE EVENT DATE: 20120703
